FAERS Safety Report 13727186 (Version 1)
Quarter: 2017Q3

REPORT INFORMATION
  Report Type: Report from Study
  Country: US (occurrence: US)
  Receive Date: 20170706
  Receipt Date: 20170706
  Transmission Date: 20171127
  Serious: Yes (Death, Hospitalization)
  Sender: FDA-Public Use
  Company Number: US-ACTELION-A-US2017-150895

PATIENT
  Age: 87 Year
  Sex: Female
  Weight: 63.49 kg

DRUGS (4)
  1. TRACLEER [Suspect]
     Active Substance: BOSENTAN
     Indication: PULMONARY HYPERTENSION
     Dosage: 125 MG, BID
     Route: 048
  2. TRACLEER [Suspect]
     Active Substance: BOSENTAN
     Dosage: UNK
     Route: 048
  3. SILDENAFIL CITRATE. [Concomitant]
     Active Substance: SILDENAFIL CITRATE
  4. XARELTO [Concomitant]
     Active Substance: RIVAROXABAN

REACTIONS (11)
  - Fatigue [Unknown]
  - Blood iron decreased [Unknown]
  - Red blood cell count decreased [Unknown]
  - Death [Fatal]
  - Oxygen saturation decreased [Unknown]
  - Macular degeneration [Unknown]
  - Epistaxis [Unknown]
  - Sinus disorder [Unknown]
  - Haemoglobin decreased [Unknown]
  - Asthenia [Unknown]
  - Dizziness [Unknown]

NARRATIVE: CASE EVENT DATE: 201701
